FAERS Safety Report 9158101 (Version 1)
Quarter: 2013Q1

REPORT INFORMATION
  Report Type: Spontaneous
  Country: US (occurrence: US)
  Receive Date: 20130312
  Receipt Date: 20130312
  Transmission Date: 20140127
  Serious: No
  Sender: FDA-Public Use
  Company Number: US-ASTRAZENECA-2013SE12998

PATIENT
  Age: 50 Year
  Sex: Female
  Weight: 61.2 kg

DRUGS (4)
  1. NEXIUM [Suspect]
     Indication: ABDOMINAL DISCOMFORT
     Route: 048
     Dates: start: 201207, end: 20130222
  2. NEXIUM [Suspect]
     Indication: GASTROOESOPHAGEAL REFLUX DISEASE
     Route: 048
     Dates: start: 201207, end: 20130222
  3. PROGESTERONE [Concomitant]
     Indication: HORMONE REPLACEMENT THERAPY
  4. ESTROGEN [Concomitant]
     Indication: HORMONE REPLACEMENT THERAPY

REACTIONS (6)
  - Cough [Recovered/Resolved]
  - Foreign body [Recovered/Resolved]
  - Palatal oedema [Recovered/Resolved]
  - Muscle spasms [Recovered/Resolved]
  - Abdominal pain upper [Not Recovered/Not Resolved]
  - Off label use [Unknown]
